FAERS Safety Report 7716281-2 (Version None)
Quarter: 2011Q3

REPORT INFORMATION
  Report Type: 
  Country: None (occurrence: None)
  Receive Date: 20110829
  Receipt Date: 20110819
  Transmission Date: 20111222
  Serious: Yes (Hospitalization)
  Sender: FDA-Public Use
  Company Number: CA-JNJFOC-20110810188

PATIENT
  Sex: Female
  Weight: 81 kg

DRUGS (5)
  1. LEVOTHYROXINE SODIUM [Concomitant]
  2. MESALAMINE [Concomitant]
     Route: 054
  3. REMICADE [Suspect]
     Indication: CROHN'S DISEASE
     Route: 042
     Dates: start: 20090825
  4. SOLU-CORTEF [Concomitant]
     Indication: PREMEDICATION
  5. CALCIUM CARBONATE [Concomitant]

REACTIONS (2)
  - VAGINAL HAEMORRHAGE [None]
  - ABDOMINAL PAIN LOWER [None]
